FAERS Safety Report 8016304-X (Version None)
Quarter: 2011Q4

REPORT INFORMATION
  Report Type: 
  Country: None (occurrence: None)
  Receive Date: 20111230
  Receipt Date: 20111219
  Transmission Date: 20120403
  Serious: Yes (Hospitalization, Other)
  Sender: FDA-Public Use
  Company Number: US-MERCK-1109USA00245

PATIENT
  Age: 63 Year
  Sex: Female

DRUGS (7)
  1. VITAMINS (UNSPECIFIED) [Concomitant]
     Route: 065
     Dates: start: 20010101
  2. FOSAMAX [Suspect]
     Indication: OSTEOPOROSIS
     Route: 048
     Dates: start: 20050101, end: 20110201
  3. MAXZIDE [Concomitant]
     Indication: HYPERTENSION
     Route: 065
     Dates: start: 19910101
  4. ACTONEL [Concomitant]
     Indication: OSTEOPOROSIS
     Route: 065
     Dates: start: 20050101, end: 20110201
  5. PREDNISONE [Concomitant]
     Route: 065
     Dates: start: 19990101
  6. ALLEGRA [Concomitant]
     Indication: HYPERSENSITIVITY
     Route: 065
  7. PRILOSEC [Concomitant]
     Route: 048
     Dates: start: 20010101

REACTIONS (9)
  - PHLEBOLITH [None]
  - DEVICE DISLOCATION [None]
  - OSTEOARTHRITIS [None]
  - FEMUR FRACTURE [None]
  - ARTHRALGIA [None]
  - FALL [None]
  - ARTHROPATHY [None]
  - BLOOD CHOLESTEROL INCREASED [None]
  - SOFT TISSUE DISORDER [None]
